FAERS Safety Report 5280543-1 (Version None)
Quarter: 2007Q1

REPORT INFORMATION
  Report Type: 
  Country: None (occurrence: None)
  Receive Date: 20061229
  Receipt Date: 20060817
  Transmission Date: 20070707
  Serious: Yes (Other)
  Sender: FDA-Public Use
  Company Number: 2006UW16464

PATIENT
  Age: 57 Year
  Sex: Male
  Weight: 74.842 kg

DRUGS (2)
  1. CRESTOR [Suspect]
     Indication: ARTERIOSCLEROSIS
     Dosage: 20 MG PO
     Route: 048
     Dates: start: 20060501, end: 20060501
  2. LISINOPRIL [Concomitant]

REACTIONS (4)
  - CARDIAC DISORDER [None]
  - FATIGUE [None]
  - HEADACHE [None]
  - PALPITATIONS [None]
